FAERS Safety Report 7125518-2 (Version None)
Quarter: 2010Q4

REPORT INFORMATION
  Report Type: 
  Country: None (occurrence: None)
  Receive Date: 20101129
  Receipt Date: 20101119
  Transmission Date: 20110411
  Serious: Yes (Hospitalization)
  Sender: FDA-Public Use
  Company Number: AU-ASTRAZENECA-2010SE55326

PATIENT
  Age: 47 Year
  Sex: Male

DRUGS (7)
  1. SEROQUEL [Suspect]
     Route: 048
  2. TRITACE [Suspect]
  3. ANTIBIOTIC NOS [Suspect]
  4. ASPIRIN [Suspect]
  5. FLUANXOL [Suspect]
     Dates: start: 20100615, end: 20101004
  6. LIPITOR [Suspect]
  7. OLMETEC [Suspect]

REACTIONS (3)
  - ANAEMIA [None]
  - CIRCULATORY COLLAPSE [None]
  - GLOMERULAR FILTRATION RATE DECREASED [None]
